FAERS Safety Report 8768425 (Version 2)
Quarter: 2012Q4

REPORT INFORMATION
  Report Type: 
  Country: RU (occurrence: RU)
  Receive Date: 20120906
  Receipt Date: 20120919
  Transmission Date: 20130627
  Serious: Yes (Hospitalization)
  Sender: FDA-Public Use
  Company Number: RU-TEVA-356201ISR

PATIENT
  Age: 63 Year
  Sex: Female

DRUGS (12)
  1. SUMAMED [Suspect]
     Indication: PNEUMONIA
     Dosage: given at maximum dosage
     Route: 065
     Dates: start: 2005
  2. CIFRAN [Suspect]
     Indication: PNEUMONIA
     Dosage: given at maximum dosage
     Route: 065
     Dates: start: 2005
  3. CEFOTAXIME [Suspect]
     Indication: PNEUMONIA
     Dosage: given at maximum dosage
     Route: 065
     Dates: start: 2005
  4. METRONIDAZOLE [Suspect]
     Indication: PNEUMONIA
     Dosage: given at maximum dosage
     Route: 065
     Dates: start: 2005
  5. CIPROFLOXACIN [Suspect]
     Indication: PNEUMONIA
     Dosage: given at maximum dosage
     Route: 065
     Dates: start: 2005
  6. AMOXICLAV [Suspect]
     Indication: PNEUMONIA
     Dosage: 3.6 Gram Daily;
     Route: 040
  7. ENALAPRIL [Concomitant]
     Indication: HYPERTENSION
     Dosage: regular use of 10 mg/day
     Route: 065
  8. ENALAPRIL [Concomitant]
     Route: 048
  9. MILDRONATE [Concomitant]
     Indication: PNEUMONIA
     Dosage: 5mL of 10% solution
     Route: 065
  10. ANALGIN [Concomitant]
     Indication: PNEUMONIA
     Dosage: 50% solution 2mL in 0.9% sodium chloride solution
     Route: 041
  11. DICLOFENAC [Concomitant]
     Indication: PNEUMONIA
     Route: 048
  12. DIFLUCAN [Concomitant]
     Indication: PNEUMONIA
     Route: 048

REACTIONS (3)
  - Acute respiratory failure [Recovered/Resolved]
  - Alveolitis allergic [Recovered/Resolved]
  - Pulmonary fibrosis [Recovered/Resolved]
